FAERS Safety Report 8505810 (Version 3)
Quarter: 2013Q1

REPORT INFORMATION
  Report Type: Spontaneous
  Country: US (occurrence: US)
  Receive Date: 20120412
  Receipt Date: 20130116
  Transmission Date: 20140127
  Serious: Yes (Hospitalization)
  Sender: FDA-Public Use
  Company Number: US-BAYER-2012-033513

PATIENT
  Age: 34 Year
  Sex: Female
  Weight: 106.5 kg

DRUGS (11)
  1. YAZ [Suspect]
     Dosage: UNK
     Dates: start: 200603, end: 201005
  2. YASMIN [Suspect]
     Dosage: UNK
     Dates: start: 2001, end: 200605
  3. CARDEC DM [Concomitant]
     Indication: COUGH
     Dosage: 1 TEASPOONFUL EVERY 6 TO 8 HOURS AS NEEDED
     Route: 048
  4. CHLORPHEN.MA.W/PHENYLEPH.HCL/DEX.METHORP.HBR [Concomitant]
     Indication: COUGH
     Dosage: 1 TEASPOONFUL EVERY 6 TO 8 HOURS AS NEEDED
  5. ALLEGRA [Concomitant]
     Dosage: 180 MG, DAILY
     Route: 048
  6. NASONEX [Concomitant]
     Dosage: 50 ?G, DAILY
     Route: 045
  7. MICARDIS [Concomitant]
     Dosage: 80/20 5 MG
     Route: 048
  8. ASTELIN [Concomitant]
     Dosage: DAILY
     Route: 045
  9. PROVENTIL [Concomitant]
     Dosage: 90 MCG EVERY 4 TO 6 HOURS AS NEEDED
  10. NORVASC [Concomitant]
     Indication: HYPERTENSION
     Dosage: 5 MG, DAILY
     Route: 048
  11. AMLODIPINE [Concomitant]
     Indication: HYPERTENSION
     Dosage: 5 MG, DAILY
     Route: 048

REACTIONS (8)
  - Pulmonary embolism [None]
  - Deep vein thrombosis [None]
  - Injury [None]
  - Pain [None]
  - Anxiety [None]
  - Anhedonia [None]
  - Pain in extremity [None]
  - Muscle spasms [None]
